FAERS Safety Report 7401777-3 (Version None)
Quarter: 2011Q2

REPORT INFORMATION
  Report Type: 
  Country: None (occurrence: None)
  Receive Date: 20110408
  Receipt Date: 20110405
  Transmission Date: 20111010
  Serious: Yes (Hospitalization)
  Sender: FDA-Public Use
  Company Number: JP-BAYER-2011-029843

PATIENT
  Sex: Female

DRUGS (6)
  1. HERBAL PREPARATION [Concomitant]
     Dosage: DAILY DOSE 7.5 G
     Route: 048
  2. URSO 250 [Concomitant]
     Dosage: DAILY DOSE 600 MG
     Route: 048
  3. LIVACT [Concomitant]
     Dosage: DAILY DOSE 3 DF
     Route: 048
  4. UREPEARL [Concomitant]
     Dosage: UNK
     Route: 061
  5. MAGLAX [Concomitant]
     Dosage: DAILY DOSE 1500 MG
     Route: 048
  6. NEXAVAR [Suspect]
     Indication: HEPATIC NEOPLASM MALIGNANT
     Dosage: DAILY DOSE 200 MG
     Route: 048
     Dates: start: 20110329

REACTIONS (1)
  - DIZZINESS [None]
